FAERS Safety Report 14063799 (Version 3)
Quarter: 2018Q2

REPORT INFORMATION
  Report Type: Spontaneous
  Country: US (occurrence: US)
  Receive Date: 20171009
  Receipt Date: 20180510
  Transmission Date: 20180711
  Serious: Yes (Hospitalization)
  Sender: FDA-Public Use
  Company Number: US-ASTRAZENECA-2017SF01476

PATIENT
  Sex: Male
  Weight: 77.1 kg

DRUGS (6)
  1. SYMBICORT [Suspect]
     Active Substance: BUDESONIDE\FORMOTEROL FUMARATE DIHYDRATE
     Indication: EMPHYSEMA
     Dosage: 160/4.5 MCG TWO INHALATIONS TWICE A DAY
     Route: 055
     Dates: end: 20170910
  2. WELLBUTRIN [Concomitant]
     Active Substance: BUPROPION HYDROCHLORIDE
     Indication: PANIC ATTACK
     Route: 048
  3. MULTIVITAMINS [Concomitant]
     Active Substance: VITAMINS
  4. KLONOPIN [Concomitant]
     Active Substance: CLONAZEPAM
     Indication: PANIC ATTACK
     Route: 048
  5. TUDORZA PRESSAIR [Suspect]
     Active Substance: ACLIDINIUM BROMIDE
     Indication: EMPHYSEMA
     Dosage: 400 MCG TWO INHALATIONS EVERY TWELVE HOURS AT 07:45 AND TWO INHALATIONS AT 19:45
     Route: 055
     Dates: start: 201711
  6. THEOPHYLLINE [Concomitant]
     Active Substance: THEOPHYLLINE ANHYDROUS

REACTIONS (6)
  - Insurance issue [Unknown]
  - Off label use [Unknown]
  - Chronic obstructive pulmonary disease [Recovering/Resolving]
  - Nephrolithiasis [Unknown]
  - Emphysema [Recovering/Resolving]
  - Device malfunction [Unknown]
